FAERS Safety Report 24003656 (Version 3)
Quarter: 2025Q2

REPORT INFORMATION
  Report Type: Report from Study
  Country: US (occurrence: US)
  Receive Date: 20240624
  Receipt Date: 20250508
  Transmission Date: 20250716
  Serious: Yes (Hospitalization, Other)
  Sender: ABBVIE
  Company Number: US-ABBVIE-5809023

PATIENT
  Sex: Female

DRUGS (2)
  1. IMBRUVICA [Suspect]
     Active Substance: IBRUTINIB
     Indication: Chronic lymphocytic leukaemia
     Route: 048
     Dates: start: 201908
  2. IMBRUVICA [Suspect]
     Active Substance: IBRUTINIB
     Indication: Chronic lymphocytic leukaemia
     Route: 048
     Dates: start: 202408

REACTIONS (9)
  - Haematoma [Unknown]
  - Irritable bowel syndrome [Unknown]
  - Hip fracture [Unknown]
  - Loss of consciousness [Unknown]
  - Food poisoning [Unknown]
  - Vomiting [Unknown]
  - Eye contusion [Recovering/Resolving]
  - Speech disorder [Unknown]
  - Illness [Unknown]
